FAERS Safety Report 10430279 (Version 1)
Quarter: 2014Q3

REPORT INFORMATION
  Report Type: Spontaneous
  Country: US (occurrence: None)
  Receive Date: 20140903
  Receipt Date: 20140903
  Transmission Date: 20150326
  Serious: Yes (Death)
  Sender: FDA-Public Use
  Company Number: None

PATIENT
  Age: 83 Year
  Sex: Male
  Weight: 71 kg

DRUGS (2)
  1. ENZALUTAMIDE [Suspect]
     Active Substance: ENZALUTAMIDE
     Indication: PROSTATE CANCER METASTATIC
     Route: 048
     Dates: start: 20140612, end: 20140731
  2. MIFEPRISTONE [Suspect]
     Active Substance: MIFEPRISTONE
     Indication: PROSTATE CANCER METASTATIC
     Route: 048
     Dates: start: 20140710, end: 20140731

REACTIONS (2)
  - Prostate cancer [None]
  - Disease progression [None]

NARRATIVE: CASE EVENT DATE: 20140825
